FAERS Safety Report 20039287 (Version 1)
Quarter: 2021Q4

REPORT INFORMATION
  Report Type: Report from Study
  Country: US (occurrence: US)
  Receive Date: 20211105
  Receipt Date: 20211105
  Transmission Date: 20220303
  Serious: Yes (Other)
  Sender: FDA-Public Use
  Company Number: US-PFIZER INC-202101454086

PATIENT
  Sex: Female
  Weight: 1.984 kg

DRUGS (7)
  1. ZOLOFT [Suspect]
     Active Substance: SERTRALINE HYDROCHLORIDE
     Indication: Depression
     Dosage: UNK
     Route: 064
  2. PRAZOSIN HYDROCHLORIDE [Suspect]
     Active Substance: PRAZOSIN HYDROCHLORIDE
     Indication: Nightmare
     Dosage: UNK
     Route: 064
  3. REXULTI [Suspect]
     Active Substance: BREXPIPRAZOLE
     Indication: Psychotic disorder
     Dosage: 1 MG
     Route: 064
  4. REXULTI [Suspect]
     Active Substance: BREXPIPRAZOLE
     Dosage: 0.5 MG
     Route: 064
  5. REXULTI [Suspect]
     Active Substance: BREXPIPRAZOLE
     Dosage: 1 MG
     Route: 064
  6. DESYREL [Suspect]
     Active Substance: TRAZODONE HYDROCHLORIDE
     Indication: Insomnia
     Dosage: UNK
     Route: 064
  7. MIRTAZAPINE [Suspect]
     Active Substance: MIRTAZAPINE
     Indication: Depression
     Dosage: UNK
     Route: 064

REACTIONS (8)
  - Maternal exposure timing unspecified [Unknown]
  - Premature baby [Unknown]
  - Small for dates baby [Unknown]
  - Foetal growth restriction [Unknown]
  - Neonatal respiratory distress syndrome [Unknown]
  - Neonatal disorder [Unknown]
  - Jaundice neonatal [Unknown]
  - Sepsis neonatal [Unknown]

NARRATIVE: CASE EVENT DATE: 20200619
